FAERS Safety Report 20691086 (Version 1)
Quarter: 2022Q2

REPORT INFORMATION
  Report Type: Spontaneous
  Country: CN (occurrence: CN)
  Receive Date: 20220408
  Receipt Date: 20220408
  Transmission Date: 20220721
  Serious: Yes (Hospitalization, Other)
  Sender: FDA-Public Use
  Company Number: CN-BAYER-2022A049630

PATIENT
  Age: 86 Year
  Sex: Male

DRUGS (2)
  1. XARELTO [Suspect]
     Active Substance: RIVAROXABAN
     Indication: Atrial fibrillation
     Dosage: UNK
     Route: 048
     Dates: end: 20210621
  2. XARELTO [Suspect]
     Active Substance: RIVAROXABAN
     Indication: Arrhythmia
     Dosage: 15 MG, QD
     Route: 048
     Dates: start: 20210622, end: 20220131

REACTIONS (14)
  - Cerebral infarction [Unknown]
  - Cerebral haematoma [Unknown]
  - Cerebral haemorrhage [Recovering/Resolving]
  - Fall [Unknown]
  - Subcutaneous haematoma [Unknown]
  - Swelling face [Unknown]
  - Hypertension [Unknown]
  - Loss of consciousness [Unknown]
  - Dysphoria [Unknown]
  - Speech disorder [Unknown]
  - Headache [Unknown]
  - Dizziness [Unknown]
  - Underdose [Unknown]
  - Prescribed underdose [Unknown]

NARRATIVE: CASE EVENT DATE: 20210601
